FAERS Safety Report 6180837-1 (Version None)
Quarter: 2009Q2

REPORT INFORMATION
  Report Type: 
  Country: None (occurrence: None)
  Receive Date: 20090506
  Receipt Date: 20090428
  Transmission Date: 20091009
  Serious: Yes (Other)
  Sender: FDA-Public Use
  Company Number: GB-ASTRAZENECA-2009GB00990

PATIENT
  Age: 45 Year
  Sex: Male

DRUGS (14)
  1. QUETIAPINE FUMARATE [Suspect]
     Indication: AGITATED DEPRESSION
     Route: 048
     Dates: start: 20090403, end: 20090403
  2. AMLODIPINE [Concomitant]
  3. ASPIRIN [Concomitant]
  4. BENDROFLUAZIDE [Concomitant]
  5. BISOPROLOL FUMARATE [Concomitant]
  6. DIAZEPAM [Concomitant]
  7. LANSOPRAZOLE [Concomitant]
  8. METFORMIN HCL [Concomitant]
  9. HUMAN INSULATARD INJECTION [Concomitant]
     Dosage: NOVO NORDISK A/S HUMAN INSULATARD INJECTION 40IU/ML 5X10ML V
  10. NOVORAPID [Concomitant]
  11. PERINDOPRIL [Concomitant]
  12. SERETIDE [Concomitant]
  13. SIMVASTATIN [Concomitant]
  14. VENLAFAXINE HCL [Concomitant]

REACTIONS (2)
  - AGGRESSION [None]
  - HOMICIDAL IDEATION [None]
